FAERS Safety Report 6269025-8 (Version None)
Quarter: 2009Q3

REPORT INFORMATION
  Report Type: 
  Country: None (occurrence: None)
  Receive Date: 20090715
  Receipt Date: 20090708
  Transmission Date: 20100115
  Serious: Yes (Other)
  Sender: FDA-Public Use
  Company Number: A0796909B

PATIENT
  Age: 24 Year
  Sex: Female

DRUGS (3)
  1. LAMICTAL [Suspect]
     Indication: EPILEPSY
     Dates: end: 20080816
  2. ORAL CONTRACEPTIVE [Suspect]
     Indication: CONTRACEPTION
     Route: 048
  3. TOPAMAX [Concomitant]
     Dosage: 200MG PER DAY

REACTIONS (3)
  - DRUG EXPOSURE DURING PREGNANCY [None]
  - LIVE BIRTH [None]
  - UNINTENDED PREGNANCY [None]
